FAERS Safety Report 10146161 (Version 1)
Quarter: 2014Q2

REPORT INFORMATION
  Report Type: Spontaneous
  Country: US (occurrence: None)
  Receive Date: 20140430
  Receipt Date: 20140430
  Transmission Date: 20141212
  Serious: Yes (Hospitalization)
  Sender: FDA-Public Use
  Company Number: None

PATIENT
  Age: 36 Year
  Sex: Female

DRUGS (4)
  1. LEVOFLOXACIN [Suspect]
     Indication: URINARY TRACT INFECTION
     Route: 042
     Dates: start: 20131104, end: 20131204
  2. HYDROMORPHONE [Concomitant]
  3. PROMETHAZINE [Concomitant]
  4. ONDANSETRON [Concomitant]

REACTIONS (3)
  - Dyspnoea [None]
  - Swollen tongue [None]
  - Anaphylactic reaction [None]
